FAERS Safety Report 15702461 (Version 3)
Quarter: 2019Q3

REPORT INFORMATION
  Report Type: Report from Study
  Country: AT (occurrence: AT)
  Receive Date: 20181210
  Receipt Date: 20190904
  Transmission Date: 20191004
  Serious: Yes (Death, Hospitalization)
  Sender: FDA-Public Use
  Company Number: AT-ACCORD-094959

PATIENT
  Age: 77 Year
  Sex: Male
  Weight: 117 kg

DRUGS (37)
  1. FURON [Concomitant]
     Active Substance: FUROSEMIDE
     Indication: CHRONIC KIDNEY DISEASE
     Dosage: 120 MILLIGRAM
     Route: 048
  2. TAMSULOSIN/TAMSULOSIN HYDROCHLORIDE [Concomitant]
     Indication: PROPHYLAXIS
     Dosage: .4 MILLIGRAM
     Route: 048
     Dates: start: 20180107
  3. PHENPROCOUMON [Concomitant]
     Active Substance: PHENPROCOUMON
     Indication: ANTICOAGULANT THERAPY
     Route: 048
  4. DILATREND [Concomitant]
     Active Substance: CARVEDILOL
     Indication: HYPERTENSION
     Dosage: 25 MILLIGRAM
     Route: 048
  5. OMEPRAZOLE. [Concomitant]
     Active Substance: OMEPRAZOLE
     Indication: PROPHYLAXIS
     Dosage: 40 MILLIGRAM
     Route: 048
  6. THIAMAZOLE [Concomitant]
     Active Substance: METHIMAZOLE
     Indication: HYPOTHYROIDISM
     Dosage: 10 MILLIGRAM
     Route: 048
     Dates: start: 20171123
  7. LOVENOX [Concomitant]
     Active Substance: ENOXAPARIN SODIUM
     Indication: THROMBOSIS PROPHYLAXIS
     Dosage: 80 MILLIGRAM
     Route: 058
     Dates: start: 201801, end: 20180205
  8. TIGECYCLINE. [Concomitant]
     Active Substance: TIGECYCLINE
     Indication: INFECTION
     Dosage: 100 MILLIGRAM
     Dates: start: 201801, end: 20180205
  9. LIRAGLUTIDE [Concomitant]
     Active Substance: LIRAGLUTIDE
     Indication: BLOOD GLUCOSE INCREASED
     Route: 058
  10. DEXAMETHASONE. [Suspect]
     Active Substance: DEXAMETHASONE
     Indication: PROPHYLAXIS OF NAUSEA AND VOMITING
     Route: 048
     Dates: start: 20180104, end: 20180107
  11. ISOPHANE INSULIN [Concomitant]
     Active Substance: INSULIN NOS
     Indication: PRODUCT USED FOR UNKNOWN INDICATION
     Dosage: 0-015IU-15IU (INSULATARD 30)
     Route: 058
     Dates: start: 20171129
  12. ALBUMIN HUMAN [Concomitant]
     Active Substance: ALBUMIN HUMAN
     Indication: PROPHYLAXIS
     Dosage: 300 MILLILITER
     Route: 041
     Dates: start: 201801, end: 20180205
  13. MAXIPIME [Concomitant]
     Active Substance: CEFEPIME HYDROCHLORIDE
     Indication: INFECTION
     Dosage: 500 MILLIGRAM
     Route: 065
     Dates: start: 201801, end: 20180205
  14. INSULIN NOVOMIX [Concomitant]
     Active Substance: INSULIN ASPART
     Indication: BLOOD GLUCOSE INCREASED
     Dosage: INCREASING UNDER STEROIDS NOVOMIX 30
     Route: 065
     Dates: start: 20180107
  15. CARVEDILOL/CARVEDILOL HYDROCHLODRIDE [Concomitant]
     Indication: HYPERTENSION
     Dosage: 12.5 MG, UNK
     Route: 048
  16. PHENPROCOUMON [Concomitant]
     Active Substance: PHENPROCOUMON
     Indication: ATRIAL FIBRILLATION
  17. CRESTOR [Concomitant]
     Active Substance: ROSUVASTATIN CALCIUM
     Indication: HYPERLIPIDAEMIA
     Dosage: 40 MILLIGRAM
     Route: 048
  18. HUMALOG [Concomitant]
     Active Substance: INSULIN LISPRO
     Indication: DIABETES MELLITUS
     Route: 065
     Dates: start: 201801, end: 20180205
  19. AMLODIPINE [Concomitant]
     Active Substance: AMLODIPINE BESYLATE
     Indication: HYPERTENSION
     Route: 065
     Dates: start: 201801, end: 20180205
  20. INSULIN NOVOMIX [Concomitant]
     Active Substance: INSULIN ASPART
     Indication: BLOOD GLUCOSE INCREASED
     Dosage: INCREASING UNDER STEROIDS NOVOMIX 30
     Route: 065
     Dates: start: 20171129, end: 20180205
  21. ISOPHANE INSULIN [Concomitant]
     Active Substance: INSULIN NOS
     Indication: DIABETES MELLITUS
     Dosage: 30IU-18IU-0-0 (INSULATARD 70)
     Route: 058
     Dates: start: 20171129
  22. INSULIN NOVOMIX [Concomitant]
     Active Substance: INSULIN ASPART
     Indication: DIABETES MELLITUS
     Dosage: INCREASING UNDER STEROIDS NOVOMIX 30
     Route: 065
     Dates: start: 20171129, end: 20180205
  23. VALSARTAN. [Concomitant]
     Active Substance: VALSARTAN
     Indication: HYPERTENSION
     Dosage: 40 MG, QD
     Route: 048
  24. PHENPROCOUMON [Concomitant]
     Active Substance: PHENPROCOUMON
     Indication: CORONARY ARTERY DISEASE
     Route: 048
  25. TIGECYCLINE. [Concomitant]
     Active Substance: TIGECYCLINE
     Indication: INFECTION
     Dosage: 100 MILLIGRAM
     Route: 065
     Dates: start: 201801, end: 20180205
  26. GEMCITABINE/GEMCITABINE HYDROCHLORIDE [Suspect]
     Active Substance: GEMCITABINE\GEMCITABINE HYDROCHLORIDE
     Indication: DUCTAL ADENOCARCINOMA OF PANCREAS
     Dosage: NOT AVAILABLE
     Route: 065
     Dates: start: 20171123
  27. ABRAXANE [Suspect]
     Active Substance: PACLITAXEL
     Indication: DUCTAL ADENOCARCINOMA OF PANCREAS
     Dosage: END DATE 18-JAN-2018
     Route: 041
     Dates: start: 20171123
  28. LIRAGLUTIDE [Concomitant]
     Active Substance: LIRAGLUTIDE
     Indication: DIABETES MELLITUS
     Dosage: LAST RECEIVED 05-FEB-2018, 1.8 MILLIGRAM
     Route: 058
     Dates: start: 20171129
  29. PERFALGAN [Concomitant]
     Active Substance: ACETAMINOPHEN
     Indication: PAIN
     Route: 065
     Dates: start: 201801, end: 20180205
  30. PANTOLOC [Concomitant]
     Active Substance: PANTOPRAZOLE SODIUM
     Indication: PROPHYLAXIS
     Dosage: 40 MILLIGRAM
     Route: 041
     Dates: start: 20180118, end: 20180205
  31. VALSARTAN. [Concomitant]
     Active Substance: VALSARTAN
     Indication: HYPERTENSION
     Dosage: 80 MILLIGRAM
     Route: 048
  32. UROSIN [Concomitant]
     Active Substance: ALLOPURINOL
     Indication: BLOOD URIC ACID INCREASED
     Dosage: 100 MILLIGRAM
     Route: 048
  33. ZOLDEM [Concomitant]
     Active Substance: ZOLPIDEM TARTRATE
     Indication: SLEEP DISORDER
     Dosage: 5 MILLIGRAM
     Route: 065
     Dates: start: 201801, end: 20180205
  34. VALSAX [Concomitant]
     Indication: HYPERTENSION
     Dosage: 80 MILLIGRAM
     Route: 048
  35. ALBUMIN HUMAN [Concomitant]
     Active Substance: ALBUMIN HUMAN
     Indication: PROPHYLAXIS
     Dosage: 300 MILLILITER
     Route: 041
     Dates: start: 201801, end: 20180205
  36. LOVENOX [Concomitant]
     Active Substance: ENOXAPARIN SODIUM
     Indication: THROMBOSIS PROPHYLAXIS
     Dosage: 80 MILLIGRAM
     Route: 058
     Dates: start: 201801, end: 20180205
  37. INSULIN NOVOMIX [Concomitant]
     Active Substance: INSULIN ASPART
     Indication: DIABETES MELLITUS
     Dosage: INCREASING UNDER STEROIDS NOVOMIX 30
     Route: 065
     Dates: start: 20180107

REACTIONS (7)
  - Blood glucose increased [Recovered/Resolved]
  - Blood gastrin increased [Recovered/Resolved]
  - Epistaxis [Recovered/Resolved]
  - Constipation [Recovered/Resolved]
  - Multiple organ dysfunction syndrome [Fatal]
  - Enteritis [Recovered/Resolved]
  - Sepsis [Fatal]

NARRATIVE: CASE EVENT DATE: 20171127
